FAERS Safety Report 10029448 (Version 3)
Quarter: 2014Q2

REPORT INFORMATION
  Report Type: Spontaneous
  Country: BE (occurrence: BE)
  Receive Date: 20140322
  Receipt Date: 20140408
  Transmission Date: 20141212
  Serious: Yes (Hospitalization)
  Sender: FDA-Public Use
  Company Number: PHHY2014BE032996

PATIENT
  Age: 34 Year
  Sex: Male

DRUGS (3)
  1. TEGRETOL [Suspect]
     Indication: EPILEPSY
     Dosage: UNK UKN, UNK
     Route: 048
     Dates: end: 201403
  2. TERBINAFINE EG [Interacting]
     Indication: ONYCHOMYCOSIS
     Dosage: 250 MG, QD
     Route: 048
     Dates: start: 20140217, end: 20140302
  3. DEPAKINE [Concomitant]
     Indication: EPILEPSY
     Dosage: UNK UKN, UNK

REACTIONS (8)
  - Rhabdomyolysis [Not Recovered/Not Resolved]
  - Myalgia [Not Recovered/Not Resolved]
  - Muscle spasms [Unknown]
  - Muscle spasticity [Unknown]
  - Blood creatine phosphokinase increased [Unknown]
  - Oropharyngeal pain [Not Recovered/Not Resolved]
  - Headache [Not Recovered/Not Resolved]
  - Rash [Not Recovered/Not Resolved]
